FAERS Safety Report 7656146-8 (Version None)
Quarter: 2011Q3

REPORT INFORMATION
  Report Type: 
  Country: None (occurrence: None)
  Receive Date: 20110801
  Receipt Date: 20110715
  Transmission Date: 20111222
  Serious: Yes (Hospitalization)
  Sender: FDA-Public Use
  Company Number: AUR-APL-2011-04360

PATIENT
  Age: 66 Year
  Sex: Male
  Weight: 100 kg

DRUGS (20)
  1. CARVEDILOL [Suspect]
     Indication: BLOOD PRESSURE ABNORMAL
     Dosage: 3.125 MG, IN MORNING, ORAL; 6.25 MG, AT NIGHT, ORAL
     Route: 048
     Dates: start: 20110101
  2. CARVEDILOL [Suspect]
     Indication: CARDIAC DISORDER
     Dosage: 3.125 MG, IN MORNING, ORAL; 6.25 MG, AT NIGHT, ORAL
     Route: 048
     Dates: start: 20110101
  3. CARVEDILOL [Suspect]
     Indication: BLOOD PRESSURE ABNORMAL
     Dosage: 3.125 MG, IN MORNING, ORAL; 6.25 MG, AT NIGHT, ORAL
     Route: 048
     Dates: start: 20110101
  4. CARVEDILOL [Suspect]
     Indication: CARDIAC DISORDER
     Dosage: 3.125 MG, IN MORNING, ORAL; 6.25 MG, AT NIGHT, ORAL
     Route: 048
     Dates: start: 20110101
  5. SUCRALFATE [Suspect]
     Indication: GASTROOESOPHAGEAL REFLUX DISEASE
     Dosage: 1 GM, 1 D,
  6. HYDROCODONE [Concomitant]
  7. FUROSEMIDE [Concomitant]
  8. FEXOFENADINE [Concomitant]
  9. ALPHA LIPOIC ACID (THIOCTIC ACID) [Concomitant]
  10. ZYRTEC [Concomitant]
  11. NOVOLOG MIX 70/30 [Concomitant]
  12. LOVAZA [Concomitant]
  13. SIMVASTATIN [Concomitant]
  14. ZYVOX [Suspect]
     Indication: INFECTION
     Dosage: 1200 MG (600 MG, 2 IN 1 D), ORAL
     Route: 048
     Dates: start: 20110101, end: 20110501
  15. ZYVOX [Suspect]
     Indication: INFECTION
     Dosage: 1200 MG (600 MG, 2 IN 1 D), ORAL
     Route: 048
     Dates: start: 20110401, end: 20110501
  16. ZYVOX [Suspect]
     Indication: INFECTION
     Dosage: 1200 MG (600 MG, 2 IN 1 D), ORAL
     Route: 048
     Dates: start: 20110701
  17. PREVACID [Suspect]
     Indication: GASTROOESOPHAGEAL REFLUX DISEASE
     Dosage: 15 MG, AS REQUIRED,
  18. VITAMIN B12 [Concomitant]
  19. FOLIC ACID [Concomitant]
  20. ZYVOX [Suspect]
     Indication: LOCALISED INFECTION
     Dosage: INTRAVENOUS
     Route: 042

REACTIONS (3)
  - SLEEP DISORDER [None]
  - LOCALISED INFECTION [None]
  - PRURITUS [None]
